FAERS Safety Report 10415113 (Version 1)
Quarter: 2014Q2

REPORT INFORMATION
  Report Type: Spontaneous
  Country: US (occurrence: None)
  Receive Date: 20140514
  Receipt Date: 20140514
  Transmission Date: 20141212
  Serious: Yes (Other)
  Sender: FDA-Public Use
  Company Number: 103706U

PATIENT
  Age: 62 Year
  Sex: Female
  Weight: 101.4 kg

DRUGS (15)
  1. CIMZIA [Suspect]
     Indication: CROHN^S DISEASE
     Dosage: 1X/3 WEEK
     Route: 058
     Dates: start: 20090403, end: 2013
  2. VITAMIN A + D [Concomitant]
  3. LISINOPRIL [Concomitant]
  4. COLESTID [Concomitant]
  5. OMEPRAZOLE [Concomitant]
  6. LOMOTIL [Concomitant]
  7. QUINESTRADIOL [Concomitant]
  8. KLOR-CON [Concomitant]
  9. LYRICA [Concomitant]
  10. CYMBALTA [Concomitant]
  11. QVAR [Concomitant]
  12. FLUTICASONE [Concomitant]
  13. VITAMIN B12 (CYANOCOBALAMIN AND ANALOGUES) [Concomitant]
  14. HYDROCODONE [Concomitant]
  15. FISH OIL [Concomitant]

REACTIONS (4)
  - Surgery [None]
  - Meniscus injury [None]
  - Joint dislocation [None]
  - Inappropriate schedule of drug administration [None]
